FAERS Safety Report 5401907-9 (Version None)
Quarter: 2007Q3

REPORT INFORMATION
  Report Type: 
  Country: None (occurrence: None)
  Receive Date: 20070726
  Receipt Date: 20060911
  Transmission Date: 20080115
  Serious: Yes (Other)
  Sender: FDA-Public Use
  Company Number: 6034370

PATIENT
  Age: 42 Year
  Sex: Male

DRUGS (6)
  1. ACYCLOVIR [Suspect]
     Indication: ENCEPHALITIS HERPES
     Dosage: 3 GM (1 GM,3 IN 1D), INTRAVENOUS
     Route: 042
  2. VALPROIC ACID [Suspect]
     Indication: CONVULSION PROPHYLAXIS
     Dosage: 1500 MG (500 MG, 3 IN 1 D), ORAL
     Route: 048
  3. CEFOTAXIME SODIUM [Concomitant]
  4. FOSFOMYCIN (FOSFOMYCIN) [Concomitant]
  5. METRONIDAZOLE [Concomitant]
  6. MANNITOL [Concomitant]

REACTIONS (3)
  - CONFUSIONAL STATE [None]
  - OVERDOSE [None]
  - RENAL FAILURE ACUTE [None]
